FAERS Safety Report 6147313-3 (Version None)
Quarter: 2009Q2

REPORT INFORMATION
  Report Type: 
  Country: None (occurrence: None)
  Receive Date: 20090408
  Receipt Date: 20090325
  Transmission Date: 20091009
  Serious: Yes (Hospitalization)
  Sender: FDA-Public Use
  Company Number: PHHY2009JP12774

PATIENT
  Age: 51 Year
  Sex: Female

DRUGS (10)
  1. SANDIMMUNE [Suspect]
     Dosage: 80 MG, UNK
  2. TOBRAMYCIN [Suspect]
     Dosage: 180 MG, UNK
  3. AMPHOTERICIN B [Suspect]
     Indication: FUNGAL INFECTION
     Dosage: 250 MG
     Dates: start: 20080720, end: 20080722
  4. AMPHOTERICIN B [Suspect]
     Indication: FEBRILE NEUTROPENIA
  5. MEROPEN [Suspect]
     Dosage: 1.5 G, QD
  6. ITRIZOLE [Concomitant]
     Route: 048
  7. URSO 250 [Concomitant]
     Dosage: 600 MG, QD
  8. TAKEPRON [Concomitant]
     Dosage: 15 MG, QD
  9. LASIX [Concomitant]
     Dosage: 40 MG, QD
     Dates: start: 20080720
  10. GRAN [Concomitant]
     Dosage: 450 MG
     Dates: start: 20080721

REACTIONS (2)
  - BLOOD CREATININE INCREASED [None]
  - BLOOD UREA INCREASED [None]
